FAERS Safety Report 25421133 (Version 1)
Quarter: 2025Q2

REPORT INFORMATION
  Report Type: Spontaneous
  Country: US (occurrence: US)
  Receive Date: 20250611
  Receipt Date: 20250611
  Transmission Date: 20250716
  Serious: No
  Sender: BAUSCH AND LOMB
  Company Number: US-BAUSCH-BL-2025-007054

PATIENT
  Sex: Female

DRUGS (1)
  1. PIMECROLIMUS [Suspect]
     Active Substance: PIMECROLIMUS
     Indication: Morphoea
     Route: 061
     Dates: start: 202505, end: 2025

REACTIONS (7)
  - Heart rate increased [Recovered/Resolved]
  - Discomfort [Recovered/Resolved]
  - Sleep disorder due to a general medical condition [Recovered/Resolved]
  - Fatigue [Recovered/Resolved]
  - Application site reaction [Recovered/Resolved]
  - Muscle twitching [Recovered/Resolved]
  - Feeling abnormal [Recovered/Resolved]

NARRATIVE: CASE EVENT DATE: 20250501
